FAERS Safety Report 15578465 (Version 1)
Quarter: 2018Q4

REPORT INFORMATION
  Report Type: Spontaneous
  Country: GB (occurrence: GB)
  Receive Date: 20181102
  Receipt Date: 20181102
  Transmission Date: 20190205
  Serious: Yes (Hospitalization, Other)
  Sender: FDA-Public Use
  Company Number: GB-UNICHEM PHARMACEUTICALS (USA) INC-UCM201810-000288

PATIENT
  Age: 43 Year
  Sex: Male

DRUGS (4)
  1. LAMOTRIGINE. [Concomitant]
     Active Substance: LAMOTRIGINE
  2. LAMOTRIGINE. [Concomitant]
     Active Substance: LAMOTRIGINE
  3. IBUPROFEN. [Concomitant]
     Active Substance: IBUPROFEN
  4. DIVALPROEX SODIUM. [Suspect]
     Active Substance: DIVALPROEX SODIUM
     Indication: EPILEPSY

REACTIONS (11)
  - Hypernatraemia [Recovered/Resolved]
  - Intentional overdose [Unknown]
  - Hyperammonaemic encephalopathy [Recovered/Resolved]
  - Thrombocytopenia [Recovered/Resolved]
  - Hyperammonaemia [Recovered/Resolved]
  - Liver function test abnormal [Recovered/Resolved]
  - Metabolic acidosis [Recovered/Resolved]
  - Toxicity to various agents [Recovered/Resolved]
  - Respiratory alkalosis [Recovered/Resolved]
  - Coma scale abnormal [Recovered/Resolved]
  - Hypocalcaemia [Recovered/Resolved]
